FAERS Safety Report 7635641-1 (Version None)
Quarter: 2011Q3

REPORT INFORMATION
  Report Type: 
  Country: None (occurrence: None)
  Receive Date: 20110726
  Receipt Date: 20110720
  Transmission Date: 20111222
  Serious: Yes (Other)
  Sender: FDA-Public Use
  Company Number: PHHY2011CA65129

PATIENT
  Sex: Female

DRUGS (2)
  1. FORTEO [Concomitant]
  2. ZOLEDRONOC ACID [Suspect]
     Indication: OSTEOPOROSIS
     Dosage: UNK
     Route: 042
     Dates: start: 20100830

REACTIONS (3)
  - GAIT DISTURBANCE [None]
  - PROTEIN URINE [None]
  - PELVIC FRACTURE [None]
